FAERS Safety Report 25668996 (Version 1)
Quarter: 2025Q3

REPORT INFORMATION
  Report Type: Spontaneous
  Country: US (occurrence: US)
  Receive Date: 20250812
  Receipt Date: 20250812
  Transmission Date: 20251020
  Serious: No
  Sender: SANDOZ
  Company Number: US-BAUSCHBL-2024BNL001835

PATIENT
  Sex: Female
  Weight: 65.77 kg

DRUGS (4)
  1. TOBRAMYCIN [Suspect]
     Active Substance: TOBRAMYCIN
     Indication: Postoperative care
     Route: 047
  2. XIIDRA [Suspect]
     Active Substance: LIFITEGRAST
     Indication: Dry eye
     Dosage: 2 DRP, Q12H (1 DROP INTO EACH EYE)
     Route: 047
     Dates: start: 20240201
  3. PREDNISONE [Concomitant]
     Active Substance: PREDNISONE
     Indication: Corneal graft rejection
     Dosage: UNK, Q8H (IN THE RIGHT EYE)
     Route: 065
  4. THERATEARS [Concomitant]
     Active Substance: CARBOXYMETHYLCELLULOSE SODIUM
     Indication: Product used for unknown indication
     Dosage: 2 DRP, Q8H (EVERY 30 MINUTES TO 1 HOUR)
     Route: 047

REACTIONS (6)
  - Oral discomfort [Unknown]
  - Stomatitis [Unknown]
  - Visual impairment [Unknown]
  - Metamorphopsia [Unknown]
  - Vision blurred [Unknown]
  - Dysgeusia [Unknown]
